FAERS Safety Report 9188088 (Version 3)
Quarter: 2013Q2

REPORT INFORMATION
  Report Type: Spontaneous
  Country: JP (occurrence: JP)
  Receive Date: 20130325
  Receipt Date: 20130419
  Transmission Date: 20140414
  Serious: Yes (Other)
  Sender: FDA-Public Use
  Company Number: JP-GLAXOSMITHKLINE-B0876053A

PATIENT
  Age: 71 Year
  Sex: Male

DRUGS (6)
  1. SERETIDE (50MCG/250MCG) [Suspect]
     Indication: COUGH
     Dosage: 250MCG TWICE PER DAY
     Route: 055
     Dates: start: 20110506
  2. GLIMEPIRIDE [Concomitant]
     Indication: DIABETES MELLITUS
     Dosage: 1MG TWICE PER DAY
     Route: 048
     Dates: start: 20061225
  3. EPADEL S [Concomitant]
     Indication: HYPERLIPIDAEMIA
     Dosage: 600MG THREE TIMES PER DAY
     Route: 048
     Dates: start: 20070717
  4. MEDET [Concomitant]
     Indication: DIABETES MELLITUS
     Dosage: 250MG THREE TIMES PER DAY
     Route: 048
     Dates: start: 20100914
  5. SEIBULE [Concomitant]
     Indication: DIABETES MELLITUS
     Dosage: .5MG THREE TIMES PER DAY
     Route: 048
     Dates: start: 20090630
  6. JANUVIA [Concomitant]
     Indication: DIABETES MELLITUS
     Dosage: 50MG PER DAY
     Route: 048
     Dates: start: 20120828

REACTIONS (1)
  - Oesophageal candidiasis [Recovered/Resolved]
